FAERS Safety Report 9288589 (Version 1)
Quarter: 2013Q2

REPORT INFORMATION
  Report Type: Spontaneous
  Country: SE (occurrence: SE)
  Receive Date: 20130514
  Receipt Date: 20130514
  Transmission Date: 20140414
  Serious: Yes (Hospitalization)
  Sender: FDA-Public Use
  Company Number: SE-BAXTER-2013BAX017760

PATIENT
  Age: 6 Year
  Sex: Male

DRUGS (1)
  1. KIOVIG 100 MG/ML INFUSIONSV?TSKA, L?SNING [Suspect]
     Indication: PRODUCT USED FOR UNKNOWN INDICATION
     Route: 042
     Dates: start: 20130427, end: 20130429

REACTIONS (5)
  - Pyrexia [Unknown]
  - Meningism [Unknown]
  - Musculoskeletal stiffness [Unknown]
  - Headache [Unknown]
  - Irritability [Unknown]
